FAERS Safety Report 8960666 (Version 1)
Quarter: 2012Q4

REPORT INFORMATION
  Report Type: 
  Country: US (occurrence: US)
  Receive Date: 20121212
  Receipt Date: 20121212
  Transmission Date: 20130627
  Serious: Yes (Other)
  Sender: FDA-Public Use
  Company Number: CHPA2012US024661

PATIENT
  Sex: Male

DRUGS (1)
  1. MAALOX ANTACID WITH ANTI-GAS [Suspect]
     Indication: ABDOMINAL DISCOMFORT
     Dosage: Unk, Unk
     Route: 048
     Dates: start: 2009

REACTIONS (1)
  - Dependence [Unknown]
